FAERS Safety Report 9809784 (Version 2)
Quarter: 2014Q1

REPORT INFORMATION
  Report Type: Report from Study
  Country: US (occurrence: US)
  Receive Date: 20140110
  Receipt Date: 20140212
  Transmission Date: 20141002
  Serious: Yes (Other)
  Sender: FDA-Public Use
  Company Number: US-ABBVIE-13P-163-1179862-00

PATIENT
  Age: 20 Year
  Sex: Female

DRUGS (4)
  1. RITONAVIR [Suspect]
     Indication: ANTIRETROVIRAL THERAPY
     Dosage: NOT TAKING AT CONCEPTION
     Route: 048
     Dates: start: 20130312
  2. TRUVADA [Suspect]
     Indication: ANTIRETROVIRAL THERAPY
     Dosage: TABLET/CAPSULE (NOT TAKING AT CONCEPTION)
     Route: 048
     Dates: start: 20130312
  3. PREZISTA [Suspect]
     Indication: ANTIRETROVIRAL THERAPY
     Dosage: TABLET/CAPSULE (NOT TAKING AT CONCEPTION)
     Route: 048
     Dates: start: 20130312
  4. RETROVIR [Suspect]
     Indication: ANTIRETROVIRAL THERAPY
     Dosage: MG/KG/HR (NOT TAKING AT CONCEPTION)
     Route: 042
     Dates: start: 20130806, end: 20130806

REACTIONS (1)
  - Premature rupture of membranes [Unknown]
